FAERS Safety Report 23685818 (Version 2)
Quarter: 2024Q2

REPORT INFORMATION
  Report Type: Spontaneous
  Country: US (occurrence: US)
  Receive Date: 20240329
  Receipt Date: 20240401
  Transmission Date: 20240716
  Serious: No
  Sender: FDA-Public Use
  Company Number: US-JNJFOC-20240354119

PATIENT

DRUGS (1)
  1. ERLEADA [Suspect]
     Active Substance: APALUTAMIDE
     Indication: Product used for unknown indication
     Route: 048

REACTIONS (12)
  - Cognitive disorder [Unknown]
  - Hypersomnia [Unknown]
  - Weight decreased [Unknown]
  - Decreased appetite [Unknown]
  - Hypertension [Unknown]
  - Headache [Unknown]
  - Chest pain [Unknown]
  - Glassy eyes [Unknown]
  - Communication disorder [Unknown]
  - Gait inability [Unknown]
  - Dyspnoea [Unknown]
  - Constipation [Unknown]
